FAERS Safety Report 21083464 (Version 2)
Quarter: 2022Q3

REPORT INFORMATION
  Report Type: Report from Study
  Country: US (occurrence: US)
  Receive Date: 20220714
  Receipt Date: 20220719
  Transmission Date: 20221026
  Serious: Yes (Other)
  Sender: FDA-Public Use
  Company Number: US-ALLERGAN-2222287US

PATIENT

DRUGS (1)
  1. PILOCARPINE [Suspect]
     Active Substance: PILOCARPINE
     Indication: Product used for unknown indication
     Dosage: UNK
     Route: 047

REACTIONS (1)
  - Retinal detachment [Recovering/Resolving]
